FAERS Safety Report 9735754 (Version 2)
Quarter: 2015Q3

REPORT INFORMATION
  Report Type: Spontaneous
  Country: US (occurrence: US)
  Receive Date: 20131206
  Receipt Date: 20150804
  Transmission Date: 20151125
  Serious: No
  Sender: FDA-Public Use
  Company Number: US-GILEAD-2009-0022671

PATIENT
  Age: 68 Year
  Sex: Male

DRUGS (16)
  1. PLAVIX [Concomitant]
     Active Substance: CLOPIDOGREL BISULFATE
  2. NEXIUM [Concomitant]
     Active Substance: ESOMEPRAZOLE MAGNESIUM
  3. GLUCOSAMINE [Concomitant]
     Active Substance: GLUCOSAMINE
  4. LIPITOR [Concomitant]
     Active Substance: ATORVASTATIN CALCIUM
  5. FLOMAX [Concomitant]
     Active Substance: TAMSULOSIN HYDROCHLORIDE
  6. ZINC [Concomitant]
     Active Substance: ZINC\ZINC CHLORIDE
  7. LETAIRIS [Suspect]
     Active Substance: AMBRISENTAN
     Indication: PULMONARY ARTERIAL HYPERTENSION
     Route: 048
     Dates: start: 20090220
  8. NIASPAN [Concomitant]
     Active Substance: NIACIN
  9. ASPIRIN. [Concomitant]
     Active Substance: ASPIRIN
  10. PROVENTIL [Concomitant]
     Active Substance: ALBUTEROL
  11. CHONDROITIN [Concomitant]
     Active Substance: CHONDROITIN
  12. FORADIL [Concomitant]
     Active Substance: FORMOTEROL FUMARATE
  13. LISINOPRIL. [Concomitant]
     Active Substance: LISINOPRIL
  14. LASIX [Concomitant]
     Active Substance: FUROSEMIDE
  15. SINGULAIR [Concomitant]
     Active Substance: MONTELUKAST SODIUM
  16. FOLIC ACID. [Concomitant]
     Active Substance: FOLIC ACID

REACTIONS (2)
  - Thinking abnormal [Unknown]
  - Depressive symptom [Unknown]

NARRATIVE: CASE EVENT DATE: 20090220
